FAERS Safety Report 5833890-6 (Version None)
Quarter: 2008Q3

REPORT INFORMATION
  Report Type: 
  Country: None (occurrence: None)
  Receive Date: 20080805
  Receipt Date: 20080730
  Transmission Date: 20090109
  Serious: Yes (Hospitalization)
  Sender: FDA-Public Use
  Company Number: A0740297A

PATIENT
  Age: 59 Year
  Sex: Female

DRUGS (4)
  1. PAROXETINE HCL [Suspect]
     Indication: DEPRESSION
     Dosage: 20MG PER DAY
     Route: 048
     Dates: start: 19980101, end: 20060501
  2. HYDROCHLOROTHIAZIDE [Concomitant]
  3. METOPROLOL [Concomitant]
  4. ALEVE [Concomitant]

REACTIONS (6)
  - ABNORMAL BEHAVIOUR [None]
  - ANGER [None]
  - CRYING [None]
  - DRUG INEFFECTIVE [None]
  - SUICIDAL IDEATION [None]
  - THERAPEUTIC RESPONSE UNEXPECTED WITH DRUG SUBSTITUTION [None]
